FAERS Safety Report 22123242 (Version 4)
Quarter: 2023Q4

REPORT INFORMATION
  Report Type: Spontaneous
  Country: CA (occurrence: CA)
  Receive Date: 20230322
  Receipt Date: 20231212
  Transmission Date: 20240110
  Serious: Yes (Hospitalization, Other)
  Sender: FDA-Public Use
  Company Number: CA-ADVANZ PHARMA-202303001984

PATIENT
  Age: 46 Year
  Sex: Female

DRUGS (4)
  1. OCALIVA [Suspect]
     Active Substance: OBETICHOLIC ACID
     Indication: Primary biliary cholangitis
     Dosage: 5 MG, QD (OCALIVA)
     Route: 048
     Dates: start: 20220901
  2. OCALIVA [Suspect]
     Active Substance: OBETICHOLIC ACID
     Dosage: 10 MG, QD (OCALIVA)
     Route: 048
     Dates: start: 202212
  3. URSO [Concomitant]
     Active Substance: URSODIOL
     Dosage: 500 MG, BID
     Dates: start: 2006
  4. FENOFIBRATE [Concomitant]
     Active Substance: FENOFIBRATE
     Dosage: 145 MG, QD
     Dates: start: 2018

REACTIONS (16)
  - Splenomegaly [Unknown]
  - Hepatomegaly [Unknown]
  - Bile duct stone [Unknown]
  - Vitiligo [Unknown]
  - Alopecia [Unknown]
  - Tongue geographic [Unknown]
  - Liver disorder [Unknown]
  - Cholelithiasis [Unknown]
  - Nausea [Unknown]
  - Cholecystectomy [Unknown]
  - Gallbladder operation [Unknown]
  - Blood alkaline phosphatase increased [Unknown]
  - Eczema [Unknown]
  - Fatigue [Unknown]
  - Pruritus [Unknown]
  - Drug ineffective [Unknown]

NARRATIVE: CASE EVENT DATE: 20221201
